FAERS Safety Report 12559491 (Version 1)
Quarter: 2016Q3

REPORT INFORMATION
  Report Type: Spontaneous
  Country: US (occurrence: US)
  Receive Date: 20160715
  Receipt Date: 20160715
  Transmission Date: 20161109
  Serious: No
  Sender: FDA-Public Use
  Company Number: US-PFIZER INC-2016328784

PATIENT
  Age: 49 Year
  Sex: Male

DRUGS (1)
  1. EFFEXOR XR [Suspect]
     Active Substance: VENLAFAXINE HYDROCHLORIDE
     Dosage: 75 MG, UNK

REACTIONS (9)
  - Insomnia [Unknown]
  - Diplopia [Unknown]
  - Disturbance in attention [Unknown]
  - Pain [Unknown]
  - Impaired driving ability [Unknown]
  - Muscle spasms [Unknown]
  - Chills [Unknown]
  - Decreased appetite [Unknown]
  - Feeling of body temperature change [Unknown]
